FAERS Safety Report 8532739-0 (Version None)
Quarter: 2012Q3

REPORT INFORMATION
  Report Type: 
  Country: None (occurrence: None)
  Receive Date: 20120724
  Receipt Date: 20120717
  Transmission Date: 20120928
  Serious: Yes (Other)
  Sender: FDA-Public Use
  Company Number: PHHY2012IT049056

PATIENT
  Age: 65 Year
  Sex: Male

DRUGS (4)
  1. ENTACAPONE [Suspect]
     Indication: PARKINSON'S DISEASE
     Dosage: 800 MG/DAY
  2. L-DOPA BENSERAZIDE [Concomitant]
     Indication: PARKINSON'S DISEASE
     Dosage: 1000 MG/DAY
  3. PRAMIPEXOLE DIHYCHLORIDE [Suspect]
     Indication: PARKINSON'S DISEASE
     Dosage: 3.05 MG/DAY
  4. CARBIDOPA + LEVODOPA [Concomitant]
     Indication: PARKINSON'S DISEASE
     Dosage: 400 MG/DAY

REACTIONS (3)
  - ON AND OFF PHENOMENON [None]
  - DRUG INEFFECTIVE [None]
  - CHOREA [None]
